FAERS Safety Report 26190697 (Version 1)
Quarter: 2025Q4

REPORT INFORMATION
  Report Type: Spontaneous
  Country: CL (occurrence: CL)
  Receive Date: 20251223
  Receipt Date: 20251223
  Transmission Date: 20260117
  Serious: Yes (Other)
  Sender: RANBAXY
  Company Number: CL-SUN PHARMACEUTICAL INDUSTRIES LTD-2025R1-543096

PATIENT
  Sex: Male

DRUGS (1)
  1. OCTREOTIDE [Suspect]
     Active Substance: OCTREOTIDE
     Indication: Neuroendocrine tumour metastatic
     Dosage: BIWEEKLY
     Route: 065

REACTIONS (2)
  - Cachexia [Unknown]
  - Right ventricular failure [Unknown]
